FAERS Safety Report 7597506-3 (Version None)
Quarter: 2011Q3

REPORT INFORMATION
  Report Type: 
  Country: None (occurrence: None)
  Receive Date: 20110708
  Receipt Date: 20110701
  Transmission Date: 20111222
  Serious: Yes (Other)
  Sender: FDA-Public Use
  Company Number: PHHY2011CH30950

PATIENT
  Age: 83 Year
  Sex: Female

DRUGS (3)
  1. COMTAN [Suspect]
     Indication: PARKINSON'S DISEASE
     Dosage: 200 MG, DAILY
     Dates: end: 20110413
  2. COMTAN [Suspect]
     Dosage: 100 MG, DAILY
     Dates: start: 20110414
  3. MADOPAR [Concomitant]
     Dosage: 1250 MG, UNK

REACTIONS (2)
  - DYSPHORIA [None]
  - HALLUCINATION [None]
